FAERS Safety Report 16770960 (Version 7)
Quarter: 2021Q4

REPORT INFORMATION
  Report Type: Report from Study
  Country: CA (occurrence: CA)
  Receive Date: 20190904
  Receipt Date: 20211229
  Transmission Date: 20220303
  Serious: Yes (Hospitalization, Other)
  Sender: FDA-Public Use
  Company Number: CA-SA-2018SA134452

PATIENT
  Age: 36 Year
  Sex: Female

DRUGS (30)
  1. ALEMTUZUMAB [Suspect]
     Active Substance: ALEMTUZUMAB
     Indication: Relapsing-remitting multiple sclerosis
     Dosage: 12 MG,QD
     Route: 041
     Dates: start: 20180507, end: 20180509
  2. METHYLPREDNISOLONE [Suspect]
     Active Substance: METHYLPREDNISOLONE
     Indication: Premedication
     Dosage: 1 G, UNK
     Route: 042
     Dates: start: 20180507, end: 20180509
  3. ACYCLOVIR [Suspect]
     Active Substance: ACYCLOVIR
     Indication: Premedication
     Dosage: 200 MG,BID
     Route: 048
     Dates: start: 20180507, end: 20180608
  4. BENADRYL [Concomitant]
     Active Substance: DIPHENHYDRAMINE HYDROCHLORIDE
     Indication: Premedication
     Dosage: 50 MG,UNK
     Route: 048
     Dates: start: 20180507, end: 20180509
  5. GRAVOL [Concomitant]
     Active Substance: DIMENHYDRINATE
     Indication: Premedication
     Dosage: 50 MG,PRN
     Route: 048
     Dates: start: 20180507
  6. TYLENOL [Concomitant]
     Active Substance: ACETAMINOPHEN
     Indication: Premedication
     Dosage: 650-975MG,PRN
     Route: 048
     Dates: start: 20180507
  7. CIMETIDINE [Concomitant]
     Active Substance: CIMETIDINE
     Indication: Premedication
     Dosage: 200 MG,BID
     Route: 048
     Dates: start: 20180509
  8. PIROXICAM [Concomitant]
     Active Substance: PIROXICAM
     Dosage: UNK UNK,QD
     Route: 048
  9. WELLBUTRIN [Concomitant]
     Active Substance: BUPROPION HYDROCHLORIDE
     Indication: Panic disorder
     Dosage: UNK UNK, UNK
     Route: 048
  10. WELLBUTRIN [Concomitant]
     Active Substance: BUPROPION HYDROCHLORIDE
  11. ATIVAN [Concomitant]
     Active Substance: LORAZEPAM
     Indication: Restless legs syndrome
     Dosage: UNK UNK,PRN
     Route: 048
     Dates: start: 20180507
  12. NEXIUM I.V. [Concomitant]
     Active Substance: ESOMEPRAZOLE SODIUM
     Indication: Gastrooesophageal reflux disease
     Dosage: UNK UNK, UNK
     Route: 048
  13. CRESTOR [Concomitant]
     Active Substance: ROSUVASTATIN CALCIUM
     Indication: Blood cholesterol increased
     Dosage: UNK UNK, UNK
     Route: 048
  14. ETHINYL ESTRADIOL\NORETHINDRONE ACETATE [Concomitant]
     Active Substance: ETHINYL ESTRADIOL\NORETHINDRONE ACETATE
     Indication: Oral contraception
     Dosage: UNK UNK, UNK
     Route: 048
  15. CANNABIDIOL\HERBALS [Concomitant]
     Active Substance: CANNABIDIOL\HERBALS
     Dosage: UNK UNK, UNK
     Route: 065
  16. SYNTHROID [Concomitant]
     Active Substance: LEVOTHYROXINE SODIUM
  17. JARDIANCE [Concomitant]
     Active Substance: EMPAGLIFLOZIN
  18. JANUMET [Concomitant]
     Active Substance: METFORMIN HYDROCHLORIDE\SITAGLIPTIN PHOSPHATE
     Indication: Type 2 diabetes mellitus
     Dosage: UNK UNK, UNK
     Route: 048
  19. COD LIVER OIL [Concomitant]
     Active Substance: COD LIVER OIL
     Dosage: UNK UNK, UNK
     Route: 048
  20. VITAMIN D NOS [Concomitant]
     Active Substance: VITAMIN D NOS
     Indication: Supplementation therapy
     Dosage: 2000 UNKNOWN UNITS
     Route: 048
  21. MELATONIN [Concomitant]
     Active Substance: MELATONIN
     Dosage: UNK UNK,PRN
     Route: 048
  22. ACYCLOVIR ABBOTT VIAL [Concomitant]
     Indication: Premedication
     Dosage: 200 MG, BID
     Route: 048
     Dates: start: 20180507
  23. ZOPICLONE [Concomitant]
     Active Substance: ZOPICLONE
     Dosage: 3.75 MG, PRN
     Route: 048
  24. LORAZEPAM [Concomitant]
     Active Substance: LORAZEPAM
     Dosage: 0.5 MG, QD
     Route: 048
  25. SITAGLIPTIN [Concomitant]
     Active Substance: SITAGLIPTIN
     Dosage: 50 MG, BID
     Route: 048
  26. PAROXETINE [Concomitant]
     Active Substance: PAROXETINE
     Dosage: 50 MG, QD
     Route: 048
  27. PAXIL [Concomitant]
     Active Substance: PAROXETINE HYDROCHLORIDE
     Indication: Panic disorder
     Dosage: UNK, UNK
     Route: 048
  28. ESOMEPRAZOLE [Concomitant]
     Active Substance: ESOMEPRAZOLE
     Dosage: 40 MG, QD
     Route: 048
  29. METFORMIN [Concomitant]
     Active Substance: METFORMIN HYDROCHLORIDE
     Dosage: 500 MG, BID
     Route: 048
  30. TRANEXAMIC ACID [Concomitant]
     Active Substance: TRANEXAMIC ACID
     Dosage: 1000 MG, TID
     Route: 048

REACTIONS (60)
  - Immune thrombocytopenia [Unknown]
  - Contusion [Recovered/Resolved]
  - Platelet count decreased [Recovering/Resolving]
  - Haematochezia [Recovered/Resolved]
  - Meningitis aseptic [Recovered/Resolved]
  - Neck pain [Recovered/Resolved]
  - Headache [Recovered/Resolved]
  - Fatigue [Recovered/Resolved]
  - Feeling hot [Recovered/Resolved]
  - Flushing [Recovered/Resolved]
  - Red cell distribution width increased [Recovered/Resolved]
  - White blood cell count increased [Not Recovered/Not Resolved]
  - Urine ketone body present [Recovered/Resolved]
  - Eosinophil count increased [Not Recovered/Not Resolved]
  - Neutrophil count increased [Not Recovered/Not Resolved]
  - Basophil count increased [Recovered/Resolved]
  - Dyspepsia [Recovering/Resolving]
  - Tri-iodothyronine free decreased [Unknown]
  - Blood thyroid stimulating hormone increased [Recovered/Resolved]
  - Urine leukocyte esterase positive [Recovered/Resolved]
  - Proteinuria [Recovered/Resolved]
  - Blood urine present [Not Recovered/Not Resolved]
  - Influenza [Recovered/Resolved]
  - Urine abnormality [Not Recovered/Not Resolved]
  - Nausea [Not Recovered/Not Resolved]
  - Headache [Recovered/Resolved]
  - Tachycardia [Recovered/Resolved]
  - Sinusitis [Recovered/Resolved]
  - Insomnia [Not Recovered/Not Resolved]
  - Lymphocyte count decreased [Recovered/Resolved]
  - Bacterial test positive [Not Recovered/Not Resolved]
  - Culture urine positive [Not Recovered/Not Resolved]
  - Pollakiuria [Not Recovered/Not Resolved]
  - Back pain [Not Recovered/Not Resolved]
  - Muscle spasms [Not Recovered/Not Resolved]
  - Gastroenteritis viral [Recovered/Resolved]
  - Alanine aminotransferase increased [Unknown]
  - Urinary tract infection [Recovered/Resolved]
  - Infusion site swelling [Recovered/Resolved]
  - Infusion site warmth [Recovered/Resolved]
  - Infusion site pain [Recovered/Resolved]
  - Infusion site discomfort [Not Recovered/Not Resolved]
  - Infusion site scar [Recovered/Resolved]
  - Infusion site pruritus [Recovered/Resolved]
  - Infusion site rash [Recovered/Resolved]
  - Abdominal pain [Recovered/Resolved]
  - Glycosylated haemoglobin increased [Unknown]
  - Blood glucose increased [Unknown]
  - Poor venous access [Recovered/Resolved]
  - Eye pain [Recovering/Resolving]
  - Illness [Not Recovered/Not Resolved]
  - Vision blurred [Recovered/Resolved]
  - Tooth fracture [Recovering/Resolving]
  - Anxiety [Recovering/Resolving]
  - Condition aggravated [Not Recovered/Not Resolved]
  - Diarrhoea [Recovered/Resolved]
  - Rash papular [Recovered/Resolved]
  - Erythema [Recovered/Resolved]
  - Procedural nausea [Unknown]
  - Procedural headache [Unknown]

NARRATIVE: CASE EVENT DATE: 20180101
